FAERS Safety Report 8780416 (Version 1)
Quarter: 2012Q4

REPORT INFORMATION
  Report Type: Spontaneous
  Country: US (occurrence: None)
  Receive Date: 20120905
  Receipt Date: 20120905
  Transmission Date: 20130627
  Serious: Yes (Life-Threatening, Hospitalization, Disabling)
  Sender: FDA-Public Use
  Company Number: None

PATIENT
  Age: 85 Year
  Sex: Male
  Weight: 116 kg

DRUGS (1)
  1. XARELTO [Suspect]
     Indication: ATRIAL FIBRILLATION
     Route: 048
     Dates: start: 20120201, end: 20120821

REACTIONS (6)
  - Nervous system disorder [None]
  - Headache [None]
  - Altered state of consciousness [None]
  - Subdural haematoma [None]
  - Paralysis [None]
  - Loss of consciousness [None]
